FAERS Safety Report 9642217 (Version 5)
Quarter: 2014Q1

REPORT INFORMATION
  Report Type: Report from Study
  Country: JP (occurrence: JP)
  Receive Date: 20131024
  Receipt Date: 20140307
  Transmission Date: 20141002
  Serious: Yes (Death, Hospitalization)
  Sender: FDA-Public Use
  Company Number: JP-PFIZER INC-2012007719

PATIENT
  Age: 75 Year
  Sex: Male
  Weight: 41 kg

DRUGS (12)
  1. TEMSIROLIMUS [Suspect]
     Indication: RENAL CELL CARCINOMA
     Dosage: 25 MG, WEEKLY
     Route: 041
     Dates: start: 20111215, end: 20111222
  2. RESTAMIN [Concomitant]
     Indication: PROPHYLAXIS
     Dosage: 60 MG, 1X/DAY (ON TEMSIROLIMUS ADMINISTRATION DAY)
     Route: 048
  3. FENTOS [Concomitant]
     Dosage: 1 MG, 2X/DAY
     Route: 061
     Dates: end: 20120209
  4. OPSO [Concomitant]
     Dosage: 5 MG, AS NEEDED
     Route: 048
  5. LOXONIN [Concomitant]
     Dosage: 120 MG, 2X/DAY
     Route: 048
  6. OSTELUC [Concomitant]
     Dosage: 400 MG, 2X/DAY
     Route: 048
  7. ANTOBRON [Concomitant]
     Dosage: 15 MG, 3X/DAY
     Route: 048
  8. ETICALM [Concomitant]
     Dosage: 1.0 MG, 1X/DAY
     Route: 048
  9. AMOBAN [Concomitant]
     Dosage: 7.5 MG, 1X/DAY
     Route: 048
  10. MAGMITT [Concomitant]
     Dosage: 990 MG, 1X/DAY
     Route: 048
  11. VASOLAN [Concomitant]
     Dosage: 80 MG, 2X/DAY
     Route: 048
     Dates: end: 20120209
  12. TAKEPRON [Concomitant]
     Dosage: 15 MG, 1X/DAY
     Route: 048
     Dates: end: 20120209

REACTIONS (2)
  - Acute respiratory distress syndrome [Fatal]
  - Pneumonia staphylococcal [Recovering/Resolving]
